FAERS Safety Report 7251915-0 (Version None)
Quarter: 2011Q1

REPORT INFORMATION
  Report Type: 
  Country: None (occurrence: None)
  Receive Date: 20110128
  Receipt Date: 20100106
  Transmission Date: 20110831
  Serious: No
  Sender: FDA-Public Use
  Company Number: US-ABBOTT-10P-163-0618581-00

PATIENT
  Age: 37 Year
  Sex: Female
  Weight: 59.02 kg

DRUGS (2)
  1. HUMIRA [Suspect]
     Indication: RHEUMATOID ARTHRITIS
     Dates: start: 20070101
  2. NITROGLYCERIN [Concomitant]
     Indication: PRODUCT USED FOR UNKNOWN INDICATION
     Route: 060

REACTIONS (2)
  - CHEST PAIN [None]
  - ANGINA PECTORIS [None]
